FAERS Safety Report 10419511 (Version 1)
Quarter: 2014Q3

REPORT INFORMATION
  Report Type: Spontaneous
  Country: GB (occurrence: None)
  Receive Date: 20140827
  Receipt Date: 20140827
  Transmission Date: 20150326
  Serious: Yes (Other)
  Sender: FDA-Public Use
  Company Number: AUR-APL-2014-08982

PATIENT
  Age: 62 Year
  Sex: Female
  Weight: 66 kg

DRUGS (5)
  1. GLUCOSAMINE (GLUCOSAMINE) [Concomitant]
     Active Substance: GLUCOSAMINE
  2. ESCITALOPRAM [Suspect]
     Active Substance: ESCITALOPRAM OXALATE
     Indication: DEPRESSION
     Route: 048
     Dates: start: 20140728
  3. FLUOXETINE (FLUOXETINE) [Concomitant]
     Active Substance: FLUOXETINE HYDROCHLORIDE
  4. LAMOTRIGINE (LAMOTRIGINE) [Concomitant]
     Active Substance: LAMOTRIGINE
  5. TRAZODOONE (TRAZODONE) [Concomitant]

REACTIONS (9)
  - Dizziness [None]
  - Arthralgia [None]
  - Condition aggravated [None]
  - Vertigo [None]
  - Exposure during pregnancy [None]
  - Hypoglycaemia [None]
  - Balance disorder [None]
  - Myalgia [None]
  - Foetal growth restriction [None]

NARRATIVE: CASE EVENT DATE: 20140731
